FAERS Safety Report 19136280 (Version 1)
Quarter: 2021Q2

REPORT INFORMATION
  Report Type: Spontaneous
  Country: US (occurrence: US)
  Receive Date: 20210414
  Receipt Date: 20210414
  Transmission Date: 20210717
  Serious: No
  Sender: FDA-Public Use
  Company Number: US-009507513-2104USA002795

PATIENT
  Age: 61 Year
  Sex: Female

DRUGS (3)
  1. SOFOSBUVIR (+) VELPATASVIR [Suspect]
     Active Substance: SOFOSBUVIR\VELPATASVIR
     Indication: HEPATITIS C
     Dosage: UNK
  2. REBETOL [Suspect]
     Active Substance: RIBAVIRIN
     Indication: HEPATITIS C
     Dosage: UNK
     Route: 048
  3. VOXILAPREVIR [Suspect]
     Active Substance: VOXILAPREVIR
     Indication: HEPATITIS C
     Dosage: UNK

REACTIONS (1)
  - Treatment failure [Unknown]
